FAERS Safety Report 10057819 (Version 6)
Quarter: 2014Q2

REPORT INFORMATION
  Report Type: Report from Study
  Country: IL (occurrence: IL)
  Receive Date: 20140404
  Receipt Date: 20140519
  Transmission Date: 20141212
  Serious: Yes (Life-Threatening)
  Sender: FDA-Public Use
  Company Number: IL-ROCHE-1376184

PATIENT
  Age: 57 Year
  Sex: Female

DRUGS (35)
  1. PERTUZUMAB [Suspect]
     Indication: HER-2 POSITIVE BREAST CANCER
     Dosage: LOADING DOSE
     Route: 042
     Dates: start: 20130711, end: 20130711
  2. PERTUZUMAB [Suspect]
     Dosage: MAINTENANCE DOSE?DATE OF LAST DOSE PRIOR TO SAE: 20/MAR/2014
     Route: 042
     Dates: start: 20130801
  3. TRASTUZUMAB [Suspect]
     Indication: HER-2 POSITIVE BREAST CANCER
     Dosage: LOADING DOSE
     Route: 042
     Dates: start: 20130711, end: 20130711
  4. TRASTUZUMAB [Suspect]
     Dosage: MAINTENANCE DOSE,?DATE OF LAST DOSE PRIOR TO SAE: 20/MAR/2014
     Route: 042
     Dates: start: 20130801
  5. DOCETAXEL [Suspect]
     Indication: HER-2 POSITIVE BREAST CANCER
     Dosage: DATE OF LAST DOSE PRIOR TO SAE: 20 MAR 2014
     Route: 042
     Dates: start: 20130715
  6. PARACETAMOL [Concomitant]
     Dosage: 1.5 GR
     Route: 065
     Dates: start: 20130711, end: 20130711
  7. DIPYRONE [Concomitant]
     Dosage: 2 GR
     Route: 065
     Dates: start: 20130711, end: 20130711
  8. DIPYRONE [Concomitant]
     Route: 065
     Dates: start: 20130923
  9. PHENERGAN [Concomitant]
     Route: 065
     Dates: start: 20130715, end: 20130715
  10. LORATADINE [Concomitant]
     Route: 065
     Dates: start: 20130715, end: 20130715
  11. HYDROCORTISONE [Concomitant]
     Route: 065
     Dates: start: 20130801, end: 20130801
  12. HYDROCORTISONE [Concomitant]
     Route: 065
     Dates: start: 20130715, end: 20130715
  13. ORALTEN [Concomitant]
     Route: 065
     Dates: start: 20130723, end: 20130909
  14. LOPERAMIDE [Concomitant]
     Route: 065
     Dates: start: 20130721, end: 20130721
  15. LOPERAMIDE [Concomitant]
     Route: 065
     Dates: start: 20140228, end: 20140301
  16. LOPERAMIDE [Concomitant]
     Route: 065
     Dates: start: 20130803, end: 20130805
  17. ENALAPRIL [Concomitant]
     Route: 065
     Dates: start: 20041004
  18. CRESTOR [Concomitant]
     Route: 065
     Dates: start: 20080615
  19. METFORMIN [Concomitant]
     Route: 065
     Dates: start: 20110314, end: 20140329
  20. METFORMIN [Concomitant]
     Route: 065
     Dates: start: 20140330
  21. NEULASTIM [Concomitant]
     Route: 065
     Dates: start: 20130712
  22. LEVEMIR [Concomitant]
     Dosage: 100 UNITS
     Route: 065
     Dates: start: 20130507, end: 20140329
  23. LEVEMIR [Concomitant]
     Dosage: 40UNITS
     Route: 065
     Dates: start: 20140330
  24. HUMALOG MIX25 [Concomitant]
     Route: 065
     Dates: start: 20130923
  25. SETRON (ISRAEL) [Concomitant]
     Route: 065
     Dates: start: 20130711
  26. CIPROLEX [Concomitant]
     Route: 065
     Dates: start: 20121130
  27. AMARYL [Concomitant]
     Route: 065
     Dates: start: 20121129
  28. AMARYL [Concomitant]
     Route: 065
     Dates: start: 20130715, end: 20130715
  29. TRAMADOL HCL [Concomitant]
     Route: 065
     Dates: start: 20130923
  30. TRAMADOL HCL [Concomitant]
     Route: 048
     Dates: start: 20130923
  31. PROTHIAZINE [Concomitant]
     Route: 065
     Dates: start: 20130715
  32. ZANTAC [Concomitant]
     Route: 065
     Dates: start: 20130711
  33. SYNTHOMYCIN [Concomitant]
     Route: 065
     Dates: start: 20131226
  34. PROCTO-GLYVENOL CREAM [Concomitant]
     Route: 065
     Dates: start: 20130718, end: 20130820
  35. ZOPICLONE [Concomitant]
     Route: 065
     Dates: start: 20130725

REACTIONS (1)
  - Renal failure acute [Recovered/Resolved]
